FAERS Safety Report 26154351 (Version 1)
Quarter: 2025Q4

REPORT INFORMATION
  Report Type: Spontaneous
  Country: US (occurrence: US)
  Receive Date: 20251215
  Receipt Date: 20251215
  Transmission Date: 20260118
  Serious: No
  Sender: BIOVITRUM
  Company Number: US-BIOVITRUM-2025-US-016959

PATIENT
  Age: 70 Year
  Sex: Female

DRUGS (1)
  1. VONJO [Suspect]
     Active Substance: PACRITINIB
     Indication: Myelofibrosis
     Dosage: TAKE 2 CAPSULES BY MOUTH 2 TIMES A DAY
     Route: 048

REACTIONS (3)
  - Dizziness [Unknown]
  - Diarrhoea [Unknown]
  - Flatulence [Unknown]
